FAERS Safety Report 4345705-6 (Version None)
Quarter: 2004Q2

REPORT INFORMATION
  Report Type: 
  Country: None (occurrence: None)
  Receive Date: 20040421
  Receipt Date: 20040409
  Transmission Date: 20050107
  Serious: Yes (Other)
  Sender: FDA-Public Use
  Company Number: 2004-BP-02812BP

PATIENT
  Age: 21 Year
  Sex: Female

DRUGS (5)
  1. VIRAMUNE [Suspect]
     Indication: HIV INFECTION
     Dosage: 200 MG (200 MG), PO : 400 MG (200 MG), PO
     Route: 048
     Dates: start: 20031021, end: 20031104
  2. VIRAMUNE [Suspect]
     Indication: HIV INFECTION
     Dosage: 200 MG (200 MG), PO : 400 MG (200 MG), PO
     Route: 048
     Dates: start: 20031104
  3. COMBIVIR [Suspect]
     Indication: HIV INFECTION
     Dosage: 2 DAILY, PO
     Route: 048
     Dates: start: 20030801, end: 20031014
  4. COMBIVIR [Suspect]
     Indication: HIV INFECTION
     Dosage: 2 DAILY, PO
     Route: 048
     Dates: start: 20031021
  5. SUSTIVA [Suspect]
     Indication: HIV INFECTION
     Dosage: 600 MG , PO
     Route: 048
     Dates: start: 20030801, end: 20031014

REACTIONS (4)
  - COMPLICATIONS OF MATERNAL EXPOSURE TO THERAPEUTIC DRUGS [None]
  - FOETAL DISTRESS SYNDROME [None]
  - MATERNAL DRUGS AFFECTING FOETUS [None]
  - STILLBIRTH [None]
